FAERS Safety Report 5950846-3 (Version None)
Quarter: 2008Q4

REPORT INFORMATION
  Report Type: 
  Country: None (occurrence: None)
  Receive Date: 20081110
  Receipt Date: 20081028
  Transmission Date: 20090506
  Serious: Yes (Hospitalization)
  Sender: FDA-Public Use
  Company Number: 2008AL011609

PATIENT
  Age: 78 Year
  Sex: Female

DRUGS (7)
  1. DOXAZOSIN MESYLATE [Suspect]
     Dosage: 8 MG; PO
     Route: 048
  2. PERINDOPRIL [Concomitant]
  3. CODEINE SUL TAB [Concomitant]
  4. ACETYLSALICYLIC ACID SRT [Concomitant]
  5. ACETAMINOPHEN [Concomitant]
  6. ISOPHANE INSULIN [Concomitant]
  7. DIPYRIDAMOLE [Concomitant]

REACTIONS (2)
  - ATRIAL FIBRILLATION [None]
  - FALL [None]
